FAERS Safety Report 5092802-6 (Version None)
Quarter: 2006Q3

REPORT INFORMATION
  Report Type: 
  Country: None (occurrence: None)
  Receive Date: 20060828
  Receipt Date: 20060817
  Transmission Date: 20061208
  Serious: Yes (Death)
  Sender: FDA-Public Use
  Company Number: HQWYE686418AUG06

PATIENT
  Age: 66 Year
  Sex: Male

DRUGS (12)
  1. MYLOTARG [Suspect]
     Indication: ACUTE MYELOID LEUKAEMIA
     Dosage: 9 MG/M^2 1X PER 1 DAY INTRAVENOUS DRIP
     Route: 041
     Dates: start: 20060513, end: 20060513
  2. DIFLUCAN [Concomitant]
  3. ISONIAZID [Concomitant]
  4. STREPTOMYCIN SULFATE (STREPTOMYCIN SULFATE) [Concomitant]
  5. FUNGUARD (MICAFUNGIN SODIUM) [Concomitant]
  6. MEROPEN (MEROPENEM) [Concomitant]
  7. FOY (GABEXATE MESILATE) [Concomitant]
  8. NEUPOGEN [Concomitant]
  9. PREDNISOLONE [Concomitant]
  10. HABEKACIN (ARBEKACIN) [Concomitant]
  11. OMEPRAZOLE [Concomitant]
  12. PREDONINE-1 (PREDNISOLONE ACETATE) [Concomitant]

REACTIONS (5)
  - BLOOD BILIRUBIN INCREASED [None]
  - DISEASE PROGRESSION [None]
  - HAEMOLYTIC ANAEMIA [None]
  - HAEMORRHAGIC DIATHESIS [None]
  - NEUTROPHIL COUNT DECREASED [None]
